FAERS Safety Report 8970106 (Version 1)
Quarter: 2012Q4

REPORT INFORMATION
  Report Type: 
  Country: JP (occurrence: JP)
  Receive Date: 20121217
  Receipt Date: 20121217
  Transmission Date: 20130627
  Serious: Yes (Hospitalization, Other)
  Sender: FDA-Public Use
  Company Number: JP-B.I. PHARMACEUTICALS,INC./RIDGEFIELD-2012-BI-03063GD

PATIENT
  Sex: Female

DRUGS (3)
  1. PRAMIPEXOLE [Suspect]
     Indication: PARKINSON^S DISEASE
  2. AMANTADINE [Suspect]
     Indication: PARKINSON^S DISEASE
  3. LEVODOPA [Suspect]
     Indication: PARKINSON^S DISEASE

REACTIONS (5)
  - Aphasia [Unknown]
  - Gait disturbance [Unknown]
  - Bradykinesia [Unknown]
  - Posture abnormal [Unknown]
  - Hallucination, visual [Recovered/Resolved]
